FAERS Safety Report 4314313-5 (Version None)
Quarter: 2004Q1

REPORT INFORMATION
  Report Type: 
  Country: None (occurrence: None)
  Receive Date: 20040309
  Receipt Date: 20040309
  Transmission Date: 20041129
  Serious: Yes (Life-Threatening, Hospitalization)
  Sender: FDA-Public Use
  Company Number: None

PATIENT
  Age: 37 Year
  Sex: Male
  Weight: 77.1115 kg

DRUGS (5)
  1. LARIAM [Suspect]
     Indication: CEREBRAL DISORDER
     Dosage: 500 MG WEEKLY ORAL, 1500 MG ONE TIME ORAL
     Route: 048
     Dates: start: 19970103, end: 19971028
  2. LARIAM [Suspect]
     Indication: MALARIA
     Dosage: 500 MG WEEKLY ORAL, 1500 MG ONE TIME ORAL
     Route: 048
     Dates: start: 19970103, end: 19971028
  3. LARIAM [Suspect]
     Indication: MALARIA PROPHYLAXIS
     Dosage: 500 MG WEEKLY ORAL, 1500 MG ONE TIME ORAL
     Route: 048
     Dates: start: 19970103, end: 19971028
  4. FLAGYL [Concomitant]
  5. CIPRO [Concomitant]

REACTIONS (5)
  - ANXIETY [None]
  - DRUG INEFFECTIVE [None]
  - MAJOR DEPRESSION [None]
  - MALARIA [None]
  - PANIC ATTACK [None]
